FAERS Safety Report 8733103 (Version 2)
Quarter: 2012Q4

REPORT INFORMATION
  Report Type: 
  Country: US (occurrence: US)
  Receive Date: 20120820
  Receipt Date: 20121016
  Transmission Date: 20130627
  Serious: Yes (Other)
  Sender: FDA-Public Use
  Company Number: US-PFIZER INC-2012201252

PATIENT
  Age: 60 Year
  Sex: Male
  Weight: 102 kg

DRUGS (5)
  1. LIPITOR [Suspect]
     Indication: BLOOD CHOLESTEROL INCREASED
     Dosage: 40 mg, daily
  2. LIPITOR [Suspect]
     Dosage: 80 mg, daily
  3. LIPITOR [Suspect]
  4. COZAAR [Concomitant]
     Indication: HYPERTENSION
     Dosage: 100 mg, daily
  5. ESIDRIX [Concomitant]
     Indication: HYPERTENSION
     Dosage: 25 mg, daily

REACTIONS (1)
  - Arterial occlusive disease [Unknown]
